FAERS Safety Report 4619225-5 (Version None)
Quarter: 2005Q2

REPORT INFORMATION
  Report Type: 
  Country: None (occurrence: None)
  Receive Date: 20050321
  Receipt Date: 20040924
  Transmission Date: 20051028
  Serious: Yes (Hospitalization, Other)
  Sender: FDA-Public Use
  Company Number: 2004-09-1635

PATIENT
  Age: 52 Year
  Sex: Male

DRUGS (8)
  1. PEG-INTRON [Suspect]
     Indication: HEPATITIS C
     Dosage: 80 MCG SC QW SUBCUTANEOUS
     Route: 058
     Dates: start: 20040723, end: 20040917
  2. INSULIN [Concomitant]
  3. LANTUS [Concomitant]
  4. ALBUTEROL [Concomitant]
  5. NORVASC [Concomitant]
  6. LIPITOR [Concomitant]
  7. ASPIRIN [Concomitant]
  8. TUMS [Concomitant]

REACTIONS (1)
  - RENAL FAILURE [None]
